FAERS Safety Report 23028149 (Version 2)
Quarter: 2023Q4

REPORT INFORMATION
  Report Type: Report from Study
  Country: AR (occurrence: AR)
  Receive Date: 20231004
  Receipt Date: 20231010
  Transmission Date: 20240110
  Serious: Yes (Death, Hospitalization)
  Sender: FDA-Public Use
  Company Number: AR-002147023-NVSC2023AR213403

PATIENT
  Age: 77 Year
  Sex: Female

DRUGS (2)
  1. MEKINIST [Suspect]
     Active Substance: TRAMETINIB DIMETHYL SULFOXIDE
     Indication: Thyroid cancer
     Dosage: 2 MG, QD
     Dates: start: 20230331
  2. TAFINLAR [Suspect]
     Active Substance: DABRAFENIB MESYLATE
     Indication: Thyroid cancer
     Dosage: 150 MG, QD (FOR A TOTAL OF 300MG), (DAILY, ON THE MORNING AT NIGHT)
     Dates: start: 20230331

REACTIONS (7)
  - Acute respiratory failure [Fatal]
  - Obstructive airways disorder [Fatal]
  - Respiratory arrest [Fatal]
  - Malignant neoplasm progression [Fatal]
  - Thyroid cancer [Fatal]
  - Dyspnoea [Fatal]
  - Drug ineffective [Unknown]

NARRATIVE: CASE EVENT DATE: 20230912
